FAERS Safety Report 7580004-0 (Version None)
Quarter: 2011Q2

REPORT INFORMATION
  Report Type: 
  Country: None (occurrence: None)
  Receive Date: 20110629
  Receipt Date: 20110624
  Transmission Date: 20111010
  Serious: Yes (Hospitalization)
  Sender: FDA-Public Use
  Company Number: CA-BRISTOL-MYERS SQUIBB COMPANY-14952444

PATIENT
  Age: 82 Year
  Sex: Female

DRUGS (15)
  1. LEVOTHYROXINE SODIUM [Concomitant]
  2. SOFLAX [Concomitant]
  3. COZAAR [Concomitant]
  4. METHOTREXATE [Concomitant]
  5. VITAMIN D [Concomitant]
  6. NEXIUM [Concomitant]
  7. FERROUS GLUCONATE [Concomitant]
  8. ORENCIA [Suspect]
     Indication: RHEUMATOID ARTHRITIS
     Dosage: INFUSON:18,LAST INFUSION ON 26JAN10 THERAPY DATES:28DEC09,19AUG10,3MAR11,11MAY,8JUN11 EXP:JUL13
     Route: 042
     Dates: start: 20091228
  9. FUROSEMIDE [Concomitant]
  10. ASCORBIC ACID [Concomitant]
  11. HYDROXYCHLOROQUINE SULFATE [Concomitant]
  12. NORVASC [Concomitant]
  13. ASPIRIN [Concomitant]
  14. FOLIC ACID [Concomitant]
  15. LIPITOR [Concomitant]

REACTIONS (6)
  - PARANASAL SINUS HYPERSECRETION [None]
  - PULMONARY OEDEMA [None]
  - FATIGUE [None]
  - LOWER RESPIRATORY TRACT INFECTION [None]
  - PNEUMONIA [None]
  - WHEEZING [None]
